FAERS Safety Report 23788143 (Version 1)
Quarter: 2024Q2

REPORT INFORMATION
  Report Type: Spontaneous
  Country: KR (occurrence: KR)
  Receive Date: 20240426
  Receipt Date: 20240426
  Transmission Date: 20240715
  Serious: Yes (Other)
  Sender: FDA-Public Use
  Company Number: KR-AMGEN-KORSP2024079225

PATIENT
  Sex: Female

DRUGS (1)
  1. LUMAKRAS [Suspect]
     Active Substance: SOTORASIB
     Indication: Non-small cell lung cancer
     Dosage: 120 MILLIGRAM
     Route: 065

REACTIONS (3)
  - Non-small cell lung cancer [Unknown]
  - Therapeutic product effect decreased [Unknown]
  - Abdominal pain [Unknown]
